FAERS Safety Report 25202020 (Version 1)
Quarter: 2025Q2

REPORT INFORMATION
  Report Type: Spontaneous
  Country: FI (occurrence: FI)
  Receive Date: 20250416
  Receipt Date: 20250416
  Transmission Date: 20250717
  Serious: Yes (Other)
  Sender: ORGANON
  Company Number: FI-BRISTOL-MYERS SQUIBB COMPANY-BMS-2017-021868

PATIENT
  Age: 45 Year
  Sex: Male

DRUGS (18)
  1. MOMETASONE FUROATE [Suspect]
     Active Substance: MOMETASONE FUROATE
     Indication: Product used for unknown indication
     Route: 065
  2. LITHIUM [Interacting]
     Active Substance: LITHIUM
     Indication: Bipolar disorder
     Dosage: 300 MG, QD
     Route: 065
     Dates: start: 20161017, end: 20161018
  3. LITHIUM [Interacting]
     Active Substance: LITHIUM
     Route: 065
     Dates: start: 20161018, end: 20161024
  4. LITHIUM [Interacting]
     Active Substance: LITHIUM
     Route: 065
     Dates: start: 20161024, end: 201705
  5. LITHIUM [Interacting]
     Active Substance: LITHIUM
     Route: 065
     Dates: start: 201705
  6. LITHIUM [Interacting]
     Active Substance: LITHIUM
     Route: 065
     Dates: start: 20170324
  7. ABILIFY [Interacting]
     Active Substance: ARIPIPRAZOLE
     Indication: Bipolar disorder
     Route: 048
     Dates: start: 20150302, end: 20161010
  8. ABILIFY [Interacting]
     Active Substance: ARIPIPRAZOLE
     Route: 048
     Dates: start: 20161010, end: 20161102
  9. ABILIFY [Interacting]
     Active Substance: ARIPIPRAZOLE
     Route: 048
     Dates: start: 20161102, end: 20161104
  10. ABILIFY [Interacting]
     Active Substance: ARIPIPRAZOLE
     Route: 048
     Dates: start: 20161104, end: 20170307
  11. ABILIFY [Interacting]
     Active Substance: ARIPIPRAZOLE
     Route: 048
     Dates: start: 20170307, end: 20170324
  12. ABILIFY [Interacting]
     Active Substance: ARIPIPRAZOLE
     Route: 048
     Dates: start: 20170324
  13. QUETIAPINE FUMARATE [Concomitant]
     Active Substance: QUETIAPINE FUMARATE
     Indication: Product used for unknown indication
     Route: 065
  14. OLANZAPINE [Concomitant]
     Active Substance: OLANZAPINE
     Indication: Product used for unknown indication
     Route: 065
     Dates: start: 20160324
  15. OLANZAPINE [Concomitant]
     Active Substance: OLANZAPINE
     Route: 065
     Dates: start: 20160324
  16. TAMSULOSIN HYDROCHLORIDE [Concomitant]
     Active Substance: TAMSULOSIN HYDROCHLORIDE
     Indication: Product used for unknown indication
     Route: 065
  17. LAMOTRIGINE [Concomitant]
     Active Substance: LAMOTRIGINE
     Indication: Product used for unknown indication
     Route: 065
  18. LEVOMEPROMAZINE [Concomitant]
     Active Substance: LEVOMEPROMAZINE
     Indication: Product used for unknown indication
     Route: 065

REACTIONS (15)
  - Tremor [Unknown]
  - Gait disturbance [Unknown]
  - Diarrhoea [Unknown]
  - Paranoia [Unknown]
  - Clumsiness [Unknown]
  - Drug interaction [Unknown]
  - Ataxia [Recovered/Resolved with Sequelae]
  - Dizziness [Unknown]
  - Musculoskeletal stiffness [Unknown]
  - Restless legs syndrome [Unknown]
  - Balance disorder [Unknown]
  - Limb discomfort [Unknown]
  - Depression [Unknown]
  - Weight increased [Unknown]
  - Fatigue [Unknown]

NARRATIVE: CASE EVENT DATE: 20160201
